FAERS Safety Report 19810921 (Version 10)
Quarter: 2025Q4

REPORT INFORMATION
  Report Type: Spontaneous
  Country: US (occurrence: US)
  Receive Date: 20210909
  Receipt Date: 20251125
  Transmission Date: 20260117
  Serious: Yes (Hospitalization, Disabling, Other)
  Sender: PURDUE
  Company Number: US-PURDUE-USA-2021-0283435

PATIENT
  Sex: Male
  Weight: 120 kg

DRUGS (37)
  1. OXYCONTIN [Suspect]
     Active Substance: OXYCODONE HYDROCHLORIDE
     Indication: Pain
     Dosage: UNKNOWN
     Route: 048
  2. OXYCONTIN [Suspect]
     Active Substance: OXYCODONE HYDROCHLORIDE
     Dosage: 40 MILLIGRAM, BID (1 TABLET, BID)
     Route: 048
  3. OXYCODONE HYDROCHLORIDE [Suspect]
     Active Substance: OXYCODONE HYDROCHLORIDE
     Indication: Pain
     Dosage: UNKNOWN
     Route: 048
  4. OXYCODONE HYDROCHLORIDE [Suspect]
     Active Substance: OXYCODONE HYDROCHLORIDE
     Indication: Pain
     Dosage: 5 MILLIGRAM, PRN
     Route: 048
  5. BUTRANS [Suspect]
     Active Substance: BUPRENORPHINE
     Indication: Pain
     Dosage: UNKNOWN
     Route: 062
  6. DILAUDID [Suspect]
     Active Substance: HYDROMORPHONE HYDROCHLORIDE
     Indication: Pain
     Dosage: UNK
     Route: 048
  7. DILAUDID [Suspect]
     Active Substance: HYDROMORPHONE HYDROCHLORIDE
     Dosage: 4 MILLIGRAM,(1 PO) QID PRN
     Route: 048
  8. DILAUDID [Suspect]
     Active Substance: HYDROMORPHONE HYDROCHLORIDE
     Dosage: 4 MILLIGRAM,(1 PO) QID
     Route: 048
  9. DILAUDID [Suspect]
     Active Substance: HYDROMORPHONE HYDROCHLORIDE
     Dosage: 4 MILLIGRAM (Q5-6H)
     Route: 048
  10. MORPHINE SULFATE [Suspect]
     Active Substance: MORPHINE SULFATE
     Indication: Pain
     Dosage: UNK
     Route: 048
  11. HYDROCODONE BITARTRATE [Suspect]
     Active Substance: HYDROCODONE BITARTRATE
     Indication: Pain
     Dosage: UNK
     Route: 065
  12. MS CONTIN [Suspect]
     Active Substance: MORPHINE SULFATE
     Indication: Pain
     Dosage: UNKNOWN
     Route: 048
  13. HYSINGLA ER [Suspect]
     Active Substance: HYDROCODONE BITARTRATE
     Indication: Pain
     Dosage: UNKNOWN
     Route: 048
  14. HYDROCODONE BITARTRATE AND ACETAMINOPHEN [Suspect]
     Active Substance: ACETAMINOPHEN\HYDROCODONE BITARTRATE
     Indication: Pain
     Dosage: UNKNOWN
     Route: 048
  15. OXYCODONE [Suspect]
     Active Substance: OXYCODONE
     Indication: Pain
     Dosage: UNKNOWN
     Route: 048
  16. OXYCODONE HYDROCHLORIDE [Suspect]
     Active Substance: OXYCODONE HYDROCHLORIDE
     Indication: Pain
     Dosage: UNKNOWN
     Route: 065
  17. MORPHINE SULFATE [Suspect]
     Active Substance: MORPHINE SULFATE
     Indication: Pain
     Dosage: UNKNOWN
     Route: 048
  18. PALLADONE [Suspect]
     Active Substance: HYDROMORPHONE HYDROCHLORIDE
     Indication: Pain
     Dosage: UNKNOWN
     Route: 048
  19. DHC PLUS [Suspect]
     Active Substance: ACETAMINOPHEN\CAFFEINE\DIHYDROCODEINE BITARTRATE
     Indication: Pain
     Dosage: UNKNOWN
     Route: 048
  20. RYZOLT [Suspect]
     Active Substance: TRAMADOL HYDROCHLORIDE
     Indication: Pain
     Dosage: UNKNOWN
     Route: 048
  21. NEURONTIN [Suspect]
     Active Substance: GABAPENTIN
     Indication: Product used for unknown indication
     Dosage: 300 MILLIGRAM, TID (1 PO)
     Route: 048
  22. NEURONTIN [Suspect]
     Active Substance: GABAPENTIN
     Dosage: 300 MILLIGRAM, QID (1 PO)
     Route: 048
  23. NEURONTIN [Suspect]
     Active Substance: GABAPENTIN
     Dosage: 400 MILLIGRAM, QID (1 PO)
     Route: 048
  24. ZONEGRAN [Suspect]
     Active Substance: ZONISAMIDE
     Indication: Product used for unknown indication
     Dosage: UNKNOWN
     Route: 065
  25. AXERT [Suspect]
     Active Substance: ALMOTRIPTAN MALATE
     Indication: Headache
     Dosage: UNK
     Route: 065
  26. AXERT [Suspect]
     Active Substance: ALMOTRIPTAN MALATE
     Indication: Sleep disorder
  27. DARVOCET [Suspect]
     Active Substance: ACETAMINOPHEN\PROPOXYPHENE HYDROCHLORIDE
     Indication: Pain
     Dosage: UNK
     Route: 065
  28. STADOL [Suspect]
     Active Substance: BUTORPHANOL TARTRATE
     Indication: Product used for unknown indication
     Dosage: UNK
     Route: 065
  29. SOMA [Suspect]
     Active Substance: CARISOPRODOL
     Indication: Muscle spasms
     Dosage: 1 PO Q6 HR PRN
     Route: 065
  30. AMBIEN [Suspect]
     Active Substance: ZOLPIDEM TARTRATE
     Indication: Sleep disorder
     Dosage: 10 MILLIGRAM (1 PO QHS PRN)
     Route: 065
  31. KADIAN [Suspect]
     Active Substance: MORPHINE SULFATE
     Indication: Product used for unknown indication
     Dosage: UNK
     Route: 065
  32. VIOXX [Suspect]
     Active Substance: ROFECOXIB
     Indication: Swelling
     Dosage: UNK
     Route: 065
  33. FIORICET [Suspect]
     Active Substance: ACETAMINOPHEN\BUTALBITAL\CAFFEINE
     Indication: Product used for unknown indication
     Dosage: UNK
     Route: 065
  34. GABITRIL [Suspect]
     Active Substance: TIAGABINE HYDROCHLORIDE
     Indication: Product used for unknown indication
     Dosage: UNK
     Route: 065
  35. PERCOCET [Suspect]
     Active Substance: ACETAMINOPHEN\OXYCODONE HYDROCHLORIDE
     Indication: Product used for unknown indication
     Dosage: UNK
     Route: 065
  36. IBUPROFEN [Suspect]
     Active Substance: IBUPROFEN
     Indication: Pain
     Dosage: UNK
     Route: 065
  37. NAPROSYN [Suspect]
     Active Substance: NAPROXEN
     Indication: Product used for unknown indication
     Dosage: UNK
     Route: 065

REACTIONS (77)
  - Overdose [Unknown]
  - Suicidal ideation [Unknown]
  - Cardiac disorder [Unknown]
  - Cardiac arrest [Unknown]
  - Brain injury [Unknown]
  - Dementia [Unknown]
  - Spina bifida [Unknown]
  - Cerebrovascular accident [Unknown]
  - Mental disorder [Unknown]
  - Tooth loss [Unknown]
  - Paedophilia [Unknown]
  - Blindness [Unknown]
  - Meningitis [Unknown]
  - Hepatic cirrhosis [Unknown]
  - Erectile dysfunction [Unknown]
  - Nephrolithiasis [Unknown]
  - Loss of consciousness [Unknown]
  - Drug dependence [Unknown]
  - Drug abuse [Unknown]
  - Drug use disorder [Unknown]
  - Learning disability [Unknown]
  - Developmental delay [Unknown]
  - Antisocial personality disorder [Unknown]
  - Liver disorder [Unknown]
  - Respiratory disorder [Unknown]
  - Illusion [Unknown]
  - Phobia [Unknown]
  - Alopecia [Unknown]
  - Weight decreased [Unknown]
  - Diplopia [Unknown]
  - Frustration tolerance decreased [Unknown]
  - Jealous delusion [Unknown]
  - Impaired quality of life [Unknown]
  - Injury [Unknown]
  - Migraine [Unknown]
  - Amnesia [Unknown]
  - Muscle twitching [Unknown]
  - Depression [Unknown]
  - Hypersensitivity [Unknown]
  - Fatigue [Unknown]
  - Dizziness [Unknown]
  - Pruritus [Unknown]
  - Drug withdrawal syndrome [Unknown]
  - Headache [Unknown]
  - Insomnia [Unknown]
  - Tremor [Unknown]
  - Muscle spasms [Unknown]
  - General physical health deterioration [Unknown]
  - Illness [Unknown]
  - Blepharospasm [Unknown]
  - Drooling [Unknown]
  - Defaecation urgency [Unknown]
  - Vertigo [Unknown]
  - Unevaluable event [Unknown]
  - Loss of personal independence in daily activities [Unknown]
  - Musculoskeletal stiffness [Unknown]
  - Pain [Unknown]
  - Mood swings [Unknown]
  - Burning sensation [Unknown]
  - Decreased appetite [Unknown]
  - Pyrexia [Unknown]
  - Vision blurred [Unknown]
  - Tinnitus [Unknown]
  - Chest pain [Unknown]
  - Abdominal pain [Unknown]
  - Diarrhoea [Unknown]
  - Joint swelling [Unknown]
  - Nausea [Unknown]
  - Asthenia [Unknown]
  - Neck pain [Unknown]
  - Nervousness [Unknown]
  - Lymphadenopathy [Unknown]
  - Sexual dysfunction [Unknown]
  - Drug ineffective [Unknown]
  - Hyperhidrosis [Unknown]
  - Heart rate increased [Unknown]
  - Drug hypersensitivity [Unknown]
